FAERS Safety Report 24089163 (Version 1)
Quarter: 2024Q3

REPORT INFORMATION
  Report Type: Spontaneous
  Country: US (occurrence: US)
  Receive Date: 20240715
  Receipt Date: 20240715
  Transmission Date: 20241016
  Serious: No
  Sender: PERRIGO
  Company Number: US-PERRIGO-23US009384

PATIENT
  Age: 72 Year
  Sex: Male
  Weight: 88.435 kg

DRUGS (2)
  1. MINOXIDIL [Suspect]
     Active Substance: MINOXIDIL
     Indication: Alopecia
     Dosage: EYE DROP TO LINE, BID
     Route: 061
     Dates: start: 20230809, end: 20230811
  2. LISINOPRIL [Concomitant]
     Active Substance: LISINOPRIL
     Indication: Hypertension
     Dosage: UNK
     Route: 065
     Dates: start: 2013

REACTIONS (4)
  - Application site burn [Recovering/Resolving]
  - Application site pruritus [Recovering/Resolving]
  - Application site pain [Recovered/Resolved]
  - Application site exfoliation [Recovering/Resolving]

NARRATIVE: CASE EVENT DATE: 20230810
